FAERS Safety Report 6915468-6 (Version None)
Quarter: 2010Q3

REPORT INFORMATION
  Report Type: 
  Country: None (occurrence: None)
  Receive Date: 20100809
  Receipt Date: 20100628
  Transmission Date: 20110219
  Serious: No
  Sender: FDA-Public Use
  Company Number: US-ABBOTT-10P-163-0654810-00

PATIENT
  Sex: Female
  Weight: 56.75 kg

DRUGS (7)
  1. DEPAKOTE ER [Suspect]
     Indication: PETIT MAL EPILEPSY
     Dates: start: 20070101, end: 20100525
  2. DEPAKOTE ER [Suspect]
     Dates: start: 20100528
  3. DIVALPROEX SODIUM [Suspect]
     Indication: PETIT MAL EPILEPSY
     Dates: start: 20100525, end: 20100527
  4. CLORAZEPATE DIPOTASSIUM [Concomitant]
     Indication: PETIT MAL EPILEPSY
     Dates: start: 20070101
  5. LISINOPRIL [Concomitant]
     Indication: HYPERTENSION
  6. MAGNESIUM [Concomitant]
     Indication: HEART RATE IRREGULAR
  7. ASPIRIN [Concomitant]
     Indication: CEREBROVASCULAR ACCIDENT

REACTIONS (3)
  - ALOPECIA [None]
  - CONSTIPATION [None]
  - PRURITUS [None]
